FAERS Safety Report 7997983-X (Version None)
Quarter: 2011Q4

REPORT INFORMATION
  Report Type: 
  Country: None (occurrence: None)
  Receive Date: 20111221
  Receipt Date: 20111216
  Transmission Date: 20120403
  Serious: Yes (Life-Threatening)
  Sender: FDA-Public Use
  Company Number: FR-PFIZER INC-2011306040

PATIENT
  Age: 25 Year
  Sex: Female

DRUGS (3)
  1. CLINDAMYCIN HCL [Suspect]
     Indication: ANTIBIOTIC PROPHYLAXIS
     Dosage: UNK
     Route: 042
     Dates: start: 20111102, end: 20111102
  2. SYNTOCINON [Suspect]
     Dosage: 5 IU/1 ML , 20 IU ADMINSITERED
     Route: 042
     Dates: start: 20111102, end: 20111102
  3. GENTAMICIN [Suspect]
     Indication: ANTIBIOTIC PROPHYLAXIS
     Dosage: 320 MG
     Route: 042
     Dates: start: 20111102, end: 20111102

REACTIONS (1)
  - ANAPHYLACTIC SHOCK [None]
